FAERS Safety Report 4618686-5 (Version None)
Quarter: 2005Q1

REPORT INFORMATION
  Report Type: 
  Country: None (occurrence: None)
  Receive Date: 20050324
  Receipt Date: 20050308
  Transmission Date: 20050727
  Serious: Yes (Death, Hospitalization)
  Sender: FDA-Public Use
  Company Number: US_0503114135

PATIENT

DRUGS (4)
  1. REGULAR ILETIN II (PORK) [Suspect]
     Dates: start: 19750101
  2. ILETIN-PORK NPH INSULIN (INSULIN, ANIMAL) [Suspect]
     Dates: start: 19750101
  3. REGULAR ILETIN II [Suspect]
     Dates: start: 19750101
  4. NPH ILETIN I (BEEF-PORK) [Suspect]
     Dates: start: 19750101

REACTIONS (2)
  - DRUG EXPOSURE DURING PREGNANCY [None]
  - STILLBIRTH [None]
